FAERS Safety Report 4381649-1 (Version None)
Quarter: 2004Q2

REPORT INFORMATION
  Report Type: 
  Country: None (occurrence: None)
  Receive Date: 20040615
  Receipt Date: 20040519
  Transmission Date: 20050107
  Serious: Yes (Hospitalization)
  Sender: FDA-Public Use
  Company Number: 368135

PATIENT
  Age: 56 Year
  Sex: Female

DRUGS (2)
  1. SORIATANE [Suspect]
     Indication: LICHEN PLANUS
     Dosage: ORAL
     Route: 048
     Dates: start: 19970715, end: 19970815
  2. DIPROLENE (BETAMETHASONE DIPROPIONATE) [Concomitant]

REACTIONS (3)
  - HYPOREFLEXIA [None]
  - NEURITIS [None]
  - POLYNEUROPATHY [None]
